FAERS Safety Report 11910733 (Version 1)
Quarter: 2016Q1

REPORT INFORMATION
  Report Type: Spontaneous
  Country: US (occurrence: None)
  Receive Date: 20160111
  Receipt Date: 20160111
  Transmission Date: 20160526
  Serious: Yes (Other)
  Sender: FDA-Public Use
  Company Number: None

PATIENT
  Age: 27 Year

DRUGS (4)
  1. LAMICTAL [Concomitant]
     Active Substance: LAMOTRIGINE
  2. ABILIFY [Suspect]
     Active Substance: ARIPIPRAZOLE
  3. NEURONTIN [Concomitant]
     Active Substance: GABAPENTIN
  4. BUSPIRONE [Concomitant]
     Active Substance: BUSPIRONE HYDROCHLORIDE

REACTIONS (1)
  - Aggression [None]

NARRATIVE: CASE EVENT DATE: 20140820
